FAERS Safety Report 7312450-4 (Version None)
Quarter: 2011Q1

REPORT INFORMATION
  Report Type: 
  Country: None (occurrence: None)
  Receive Date: 20110224
  Receipt Date: 20101207
  Transmission Date: 20110831
  Serious: No
  Sender: FDA-Public Use
  Company Number: US-MYLANLABS-2010S1022565

PATIENT
  Age: 67 Year
  Sex: Male

DRUGS (3)
  1. LEVETIRACETAM [Suspect]
     Route: 048
     Dates: start: 20100901, end: 20101128
  2. SPIRIVA [Concomitant]
     Route: 055
  3. LOPRESSOR [Concomitant]
     Route: 048

REACTIONS (2)
  - TREATMENT NONCOMPLIANCE [None]
  - DRUG LEVEL BELOW THERAPEUTIC [None]
